FAERS Safety Report 4565295-2 (Version None)
Quarter: 2005Q1

REPORT INFORMATION
  Report Type: 
  Country: None (occurrence: None)
  Receive Date: 20050125
  Receipt Date: 20050106
  Transmission Date: 20050727
  Serious: Yes (Other)
  Sender: FDA-Public Use
  Company Number: 601656

PATIENT
  Age: 4 Week
  Sex: Male

DRUGS (5)
  1. ADVATE (ANTIHEMOPHILIC FACTOR (RECOMBINANT), PLASMA/ALBUMIN FREE METHO [Suspect]
     Indication: FACTOR VIII DEFICIENCY
     Dosage: 125 IU; TID;
     Dates: start: 20040101, end: 20041126
  2. CAFFEINE [Concomitant]
  3. FLUCOXACILLIN [Concomitant]
  4. BENZYLPENICILLIN [Concomitant]
  5. GENTAMICIN [Concomitant]

REACTIONS (2)
  - COAGULATION FACTOR VIII LEVEL DECREASED [None]
  - FACTOR VIII INHIBITION [None]
